FAERS Safety Report 9735181 (Version 1)
Quarter: 2013Q4

REPORT INFORMATION
  Report Type: Not Available
  Country: GB (occurrence: GB)
  Receive Date: 20131206
  Receipt Date: 20131206
  Transmission Date: 20140711
  Serious: Yes (Disabling)
  Sender: FDA-Public Use
  Company Number: GB-ASTELLAS-2013EU010585

PATIENT
  Age: 88 Year
  Sex: Female
  Weight: 49 kg

DRUGS (1)
  1. YM178 [Suspect]
     Indication: HYPERTONIC BLADDER
     Dosage: 50 MG, UID/QD
     Route: 048
     Dates: start: 20130920, end: 20130927

REACTIONS (1)
  - Withdrawal hypertension [Recovered/Resolved]
